FAERS Safety Report 7379039-2 (Version None)
Quarter: 2011Q1

REPORT INFORMATION
  Report Type: 
  Country: None (occurrence: None)
  Receive Date: 20110328
  Receipt Date: 20110325
  Transmission Date: 20110831
  Serious: Yes (Death, Other)
  Sender: FDA-Public Use
  Company Number: US-ELI_LILLY_AND_COMPANY-US201101006040

PATIENT
  Sex: Male
  Weight: 73.923 kg

DRUGS (1)
  1. GEMZAR [Suspect]
     Dosage: 2000 MG, UNK
     Dates: start: 20101007, end: 20101124

REACTIONS (2)
  - CHRONIC OBSTRUCTIVE PULMONARY DISEASE [None]
  - RESPIRATORY FAILURE [None]
